FAERS Safety Report 14213318 (Version 2)
Quarter: 2018Q2

REPORT INFORMATION
  Report Type: Report from Study
  Country: CA (occurrence: CA)
  Receive Date: 20171122
  Receipt Date: 20180513
  Transmission Date: 20180711
  Serious: Yes (Other)
  Sender: FDA-Public Use
  Company Number: CA-ROCHE-1784000

PATIENT
  Age: 53 Year
  Sex: Female
  Weight: 55 kg

DRUGS (8)
  1. ACTEMRA [Suspect]
     Active Substance: TOCILIZUMAB
     Indication: RHEUMATOID ARTHRITIS
     Route: 042
     Dates: start: 20160623, end: 20161207
  2. ACTEMRA [Suspect]
     Active Substance: TOCILIZUMAB
     Route: 058
     Dates: start: 20180503
  3. METHOTREXATE. [Concomitant]
     Active Substance: METHOTREXATE
  4. ACTEMRA [Suspect]
     Active Substance: TOCILIZUMAB
     Indication: RHEUMATOID ARTHRITIS
     Dosage: EVERY OTHER WEEK
     Route: 058
     Dates: start: 20161221
  5. ACTEMRA [Suspect]
     Active Substance: TOCILIZUMAB
     Route: 058
     Dates: start: 2017
  6. ELIDEL [Concomitant]
     Active Substance: PIMECROLIMUS
  7. PREDNISONE. [Concomitant]
     Active Substance: PREDNISONE
  8. ERYTHROMYCIN. [Concomitant]
     Active Substance: ERYTHROMYCIN

REACTIONS (14)
  - Throat tightness [Unknown]
  - Feeling cold [Unknown]
  - Headache [Unknown]
  - Cough [Unknown]
  - Tachycardia [Unknown]
  - Weight increased [Unknown]
  - Throat irritation [Unknown]
  - Chest discomfort [Unknown]
  - Chest discomfort [Unknown]
  - Throat tightness [Unknown]
  - Cellulitis [Unknown]
  - Headache [Unknown]
  - Palpitations [Unknown]
  - Rash pruritic [Unknown]

NARRATIVE: CASE EVENT DATE: 20160623
